FAERS Safety Report 23936169 (Version 1)
Quarter: 2024Q2

REPORT INFORMATION
  Report Type: Spontaneous
  Country: US (occurrence: US)
  Receive Date: 20240604
  Receipt Date: 20240604
  Transmission Date: 20240715
  Serious: Yes (Other)
  Sender: FDA-Public Use
  Company Number: US-SUN PHARMACEUTICAL INDUSTRIES LTD-2024R1-449369

PATIENT
  Age: 74 Year
  Sex: Female

DRUGS (2)
  1. RISPERIDONE [Suspect]
     Active Substance: RISPERIDONE
     Indication: Illusion
     Dosage: 0.25 MILLIGRAM, DAILY
     Route: 048
  2. RISPERIDONE [Suspect]
     Active Substance: RISPERIDONE
     Dosage: 2 MILLIGRAM, DAILY
     Route: 048

REACTIONS (1)
  - Dementia with Lewy bodies [Recovering/Resolving]
